FAERS Safety Report 12797999 (Version 1)
Quarter: 2016Q3

REPORT INFORMATION
  Report Type: Spontaneous
  Country: US (occurrence: US)
  Receive Date: 20160929
  Receipt Date: 20160929
  Transmission Date: 20161109
  Serious: Yes (Disabling)
  Sender: FDA-Public Use
  Company Number: None

PATIENT
  Age: 60 Year
  Sex: Male
  Weight: 81 kg

DRUGS (5)
  1. PEPCID [Concomitant]
     Active Substance: FAMOTIDINE
  2. IBUPROFEN. [Concomitant]
     Active Substance: IBUPROFEN
  3. VALSARTAN. [Suspect]
     Active Substance: VALSARTAN
     Indication: HYPERTENSION
     Route: 048
  4. GENERIC ESCITALOPRAM [Concomitant]
  5. CELEBREX [Concomitant]
     Active Substance: CELECOXIB

REACTIONS (6)
  - Blood creatinine increased [None]
  - Hypertension [None]
  - Product substitution issue [None]
  - Dizziness [None]
  - Dyspnoea [None]
  - Drug ineffective [None]

NARRATIVE: CASE EVENT DATE: 20160330
